FAERS Safety Report 21058456 (Version 3)
Quarter: 2022Q4

REPORT INFORMATION
  Report Type: Report from Study
  Country: US (occurrence: US)
  Receive Date: 20220708
  Receipt Date: 20221004
  Transmission Date: 20230113
  Serious: No
  Sender: FDA-Public Use
  Company Number: US-NOVARTISTESTPH-NVSC2022US155583

PATIENT
  Sex: Female

DRUGS (2)
  1. TASIGNA [Suspect]
     Active Substance: NILOTINIB
     Indication: Product used for unknown indication
     Dosage: UNK
     Route: 048
     Dates: start: 20220629
  2. GLEEVEC [Suspect]
     Active Substance: IMATINIB MESYLATE
     Indication: Product used for unknown indication
     Dosage: UNK
     Route: 048

REACTIONS (9)
  - Protein total decreased [Unknown]
  - Nipple pain [Unknown]
  - Skin laceration [Unknown]
  - Nipple swelling [Unknown]
  - Fatigue [Unknown]
  - Muscle spasms [Unknown]
  - Blood bilirubin increased [Unknown]
  - Blood phosphorus decreased [Unknown]
  - Inappropriate schedule of product administration [Unknown]
